FAERS Safety Report 9610400 (Version 2)
Quarter: 2013Q4

REPORT INFORMATION
  Report Type: Spontaneous
  Country: US (occurrence: US)
  Receive Date: 20131009
  Receipt Date: 20131009
  Transmission Date: 20140711
  Serious: No
  Sender: FDA-Public Use
  Company Number: US-PURDUE-USA-2012-0096891

PATIENT
  Age: 77 Year
  Sex: Male

DRUGS (2)
  1. BUTRANS [Suspect]
     Indication: BACK PAIN
     Dosage: 10 MCG, UNK
     Route: 062
     Dates: start: 20121201
  2. BUTRANS [Suspect]
     Dosage: 10 MCG (TWO 10MCG PATCHES AT ONCE, 1/WEEK
     Route: 062
     Dates: start: 20121204

REACTIONS (8)
  - Extra dose administered [Unknown]
  - Unevaluable event [Not Recovered/Not Resolved]
  - Pain [Unknown]
  - Drug effect delayed [Unknown]
  - Inadequate analgesia [Unknown]
  - Malaise [Unknown]
  - Fatigue [Unknown]
  - Constipation [Unknown]
